FAERS Safety Report 4410824-2 (Version None)
Quarter: 2004Q2

REPORT INFORMATION
  Report Type: 
  Country: None (occurrence: None)
  Receive Date: 20040630
  Receipt Date: 20040506
  Transmission Date: 20050107
  Serious: No
  Sender: FDA-Public Use
  Company Number: 04P-163-0259913-00

PATIENT
  Age: 66 Year
  Sex: Female
  Weight: 97.5234 kg

DRUGS (7)
  1. HUMIRA [Suspect]
     Indication: RHEUMATOID ARTHRITIS
     Dosage: 40 MG, 1 IN 2 WK, SUBCUTANEOUS
     Route: 058
     Dates: start: 20040301
  2. DILTIAZEM HYDROCHLORIDE [Concomitant]
  3. ZETIA [Concomitant]
  4. ERGOCALCIFEROL [Concomitant]
  5. TOCOPHEROL CONCENTRATE CAP [Concomitant]
  6. CALCIUM [Concomitant]
  7. LORATADINE [Concomitant]

REACTIONS (1)
  - FURUNCLE [None]
